FAERS Safety Report 22540901 (Version 1)
Quarter: 2023Q2

REPORT INFORMATION
  Report Type: Report from Study
  Country: US (occurrence: US)
  Receive Date: 20230609
  Receipt Date: 20230609
  Transmission Date: 20230722
  Serious: Yes (Other)
  Sender: FDA-Public Use
  Company Number: US-BAYER-2023A075885

PATIENT
  Age: 55 Year
  Sex: Male

DRUGS (1)
  1. STIVARGA [Suspect]
     Active Substance: REGORAFENIB
     Indication: Colorectal cancer
     Dosage: 80 MG, QD
     Route: 048
     Dates: start: 20230521, end: 20230524

REACTIONS (3)
  - Large intestine perforation [Recovering/Resolving]
  - Large intestinal obstruction [Recovering/Resolving]
  - Off label use [None]

NARRATIVE: CASE EVENT DATE: 20230524
